FAERS Safety Report 15051358 (Version 1)
Quarter: 2018Q2

REPORT INFORMATION
  Report Type: Spontaneous
  Country: GB (occurrence: GB)
  Receive Date: 20180622
  Receipt Date: 20180622
  Transmission Date: 20180711
  Serious: Yes (Disabling)
  Sender: FDA-Public Use
  Company Number: GB-DRREDDYS-GER/UKI/18/0100564

PATIENT
  Age: 70 Year
  Sex: Female
  Weight: 80 kg

DRUGS (2)
  1. CLOPIDOGREL [Concomitant]
     Active Substance: CLOPIDOGREL BISULFATE
     Indication: PRODUCT USED FOR UNKNOWN INDICATION
     Dosage: IN THE MORNING
     Dates: start: 20180409
  2. AMLODIPINE [Suspect]
     Active Substance: AMLODIPINE BESYLATE
     Indication: CEREBROVASCULAR ACCIDENT
     Dates: start: 20180409

REACTIONS (5)
  - Hypertension [Recovering/Resolving]
  - Panic reaction [Unknown]
  - Oedema peripheral [Unknown]
  - Malaise [Unknown]
  - Flushing [Unknown]

NARRATIVE: CASE EVENT DATE: 20180418
